FAERS Safety Report 6050431-1 (Version None)
Quarter: 2009Q1

REPORT INFORMATION
  Report Type: 
  Country: None (occurrence: None)
  Receive Date: 20090122
  Receipt Date: 20090122
  Transmission Date: 20090719
  Serious: Yes (Life-Threatening)
  Sender: FDA-Public Use
  Company Number: None

PATIENT
  Age: 55 Year
  Sex: Male

DRUGS (1)
  1. ALTEPLASE GENENTECH [Suspect]
     Indication: ISCHAEMIC STROKE
     Dosage: 90MG ONCE IV
     Route: 042
     Dates: start: 20081112, end: 20081112

REACTIONS (5)
  - AGITATION [None]
  - INFUSION RELATED REACTION [None]
  - RESPIRATORY DEPRESSION [None]
  - URTICARIA [None]
  - WHEEZING [None]
